FAERS Safety Report 6601989-2 (Version None)
Quarter: 2010Q1

REPORT INFORMATION
  Report Type: 
  Country: None (occurrence: None)
  Receive Date: 20100225
  Receipt Date: 20100217
  Transmission Date: 20100710
  Serious: Yes (Death, Other)
  Sender: FDA-Public Use
  Company Number: CA-ELI_LILLY_AND_COMPANY-CA201002004696

PATIENT
  Age: 17 Year
  Sex: Female

DRUGS (3)
  1. ZYPREXA [Suspect]
     Indication: BACK PAIN
  2. NEURONTIN [Concomitant]
     Indication: BACK PAIN
  3. HYDROCODONE [Concomitant]
     Indication: BACK PAIN

REACTIONS (3)
  - DRUG LEVEL INCREASED [None]
  - OFF LABEL USE [None]
  - RESPIRATORY DEPRESSION [None]
